FAERS Safety Report 5860648-4 (Version None)
Quarter: 2008Q3

REPORT INFORMATION
  Report Type: 
  Country: None (occurrence: None)
  Receive Date: 20080827
  Receipt Date: 20071012
  Transmission Date: 20090109
  Serious: No
  Sender: FDA-Public Use
  Company Number: US-ABBOTT-07P-163-0420480-00

PATIENT
  Sex: Male
  Weight: 79.45 kg

DRUGS (6)
  1. NIASPAN [Suspect]
     Indication: HIGH DENSITY LIPOPROTEIN DECREASED
     Route: 048
     Dates: start: 20071002, end: 20071009
  2. METOPROPOLOL [Concomitant]
     Indication: HYPERTENSION
     Route: 048
  3. LOTREL [Concomitant]
     Indication: HYPERTENSION
     Route: 048
  4. CLOPIDOGREL [Concomitant]
     Indication: STENT PLACEMENT
     Route: 048
  5. SIMVASTATIN [Concomitant]
     Indication: BLOOD CHOLESTEROL INCREASED
     Route: 048
  6. ACETYLSALICYLIC ACID SRT [Concomitant]
     Indication: DRUG USE FOR UNKNOWN INDICATION
     Route: 048

REACTIONS (2)
  - DIZZINESS [None]
  - NECK PAIN [None]
